FAERS Safety Report 15430569 (Version 1)
Quarter: 2018Q3

REPORT INFORMATION
  Report Type: Spontaneous
  Country: JP (occurrence: JP)
  Receive Date: 20180926
  Receipt Date: 20180926
  Transmission Date: 20181010
  Serious: Yes (Hospitalization, Other)
  Sender: FDA-Public Use
  Company Number: JP-JNJFOC-20180927075

PATIENT
  Sex: Female

DRUGS (2)
  1. DARZALEX [Suspect]
     Active Substance: DARATUMUMAB
     Indication: PLASMA CELL MYELOMA
     Route: 041
     Dates: start: 201809
  2. RANMARK [Concomitant]
     Active Substance: DENOSUMAB
     Dates: end: 201809

REACTIONS (5)
  - Pyrexia [Unknown]
  - Infusion related reaction [Unknown]
  - Malaise [Unknown]
  - Cough [Unknown]
  - Tumour lysis syndrome [Unknown]

NARRATIVE: CASE EVENT DATE: 201809
